FAERS Safety Report 10227937 (Version 1)
Quarter: 2014Q2

REPORT INFORMATION
  Report Type: Spontaneous
  Country: US (occurrence: None)
  Receive Date: 20140609
  Receipt Date: 20140609
  Transmission Date: 20141212
  Serious: Yes (Other)
  Sender: FDA-Public Use
  Company Number: None

PATIENT
  Age: 32 Year
  Sex: Female
  Weight: 58.97 kg

DRUGS (1)
  1. BACTRIM DS [Suspect]
     Indication: URINARY TRACT INFECTION
     Route: 048
     Dates: start: 20140523, end: 20140524

REACTIONS (4)
  - Vaginal mucosal blistering [None]
  - Oral mucosal blistering [None]
  - Vulvovaginal swelling [None]
  - Blister [None]
